FAERS Safety Report 18156218 (Version 1)
Quarter: 2020Q3

REPORT INFORMATION
  Report Type: Spontaneous
  Country: US (occurrence: US)
  Receive Date: 20200817
  Receipt Date: 20200817
  Transmission Date: 20201103
  Serious: No
  Sender: FDA-Public Use
  Company Number: US-RECORDATI RARE DISEASES-US-R13005-19-00222

PATIENT
  Sex: Female
  Weight: 47.22 kg

DRUGS (1)
  1. TRANXENE [Suspect]
     Active Substance: CLORAZEPATE DIPOTASSIUM
     Indication: SEIZURE
     Route: 065
     Dates: start: 1984

REACTIONS (3)
  - Product availability issue [Unknown]
  - Product substitution issue [Unknown]
  - Product supply issue [Unknown]
